FAERS Safety Report 4472445-5 (Version None)
Quarter: 2004Q4

REPORT INFORMATION
  Report Type: 
  Country: None (occurrence: None)
  Receive Date: 20041007
  Receipt Date: 20040928
  Transmission Date: 20050328
  Serious: Yes (Other)
  Sender: FDA-Public Use
  Company Number: 0104-1897

PATIENT
  Age: 69 Year
  Sex: Female
  Weight: 108.8633 kg

DRUGS (12)
  1. ADVICOR [Suspect]
     Indication: BLOOD TRIGLYCERIDES INCREASED
     Dosage: 1 TABLET (S) QHS PO
     Route: 048
     Dates: start: 20040927
  2. PREVACID [Concomitant]
  3. NORVASC [Concomitant]
  4. SINGULAIR [Concomitant]
  5. POTASSIUM [Concomitant]
  6. ALBUTEROL [Concomitant]
  7. ADVAIR DISKUS 100/50 [Concomitant]
  8. ALBUTEROL [Concomitant]
  9. CELEBREX [Concomitant]
  10. MULTIVITAMIN [Concomitant]
  11. PREMARIN [Concomitant]
  12. LASIX [Concomitant]

REACTIONS (6)
  - ASTHMA [None]
  - FLUSHING [None]
  - PRURITUS [None]
  - SWELLING FACE [None]
  - THERAPY NON-RESPONDER [None]
  - URTICARIA [None]
